FAERS Safety Report 8905166 (Version 2)
Quarter: 2013Q1

REPORT INFORMATION
  Report Type: Spontaneous
  Country: AR (occurrence: AR)
  Receive Date: 20121112
  Receipt Date: 20130314
  Transmission Date: 20140127
  Serious: Yes (Hospitalization, Other)
  Sender: FDA-Public Use
  Company Number: PHHY2012AR103581

PATIENT
  Age: 80 Year
  Sex: Female

DRUGS (1)
  1. DIOVAN [Suspect]
     Indication: ARRHYTHMIA
     Dosage: 80 MG, ONE TABLET PER DAY
     Dates: start: 2009

REACTIONS (5)
  - Road traffic accident [Recovering/Resolving]
  - Face injury [Recovering/Resolving]
  - Head injury [Recovering/Resolving]
  - Limb discomfort [Unknown]
  - Pain [Unknown]
